FAERS Safety Report 8758837 (Version 2)
Quarter: 2012Q4

REPORT INFORMATION
  Report Type: Spontaneous
  Country: JP (occurrence: None)
  Receive Date: 20120814
  Receipt Date: 20120831
  Transmission Date: 20130627
  Serious: Yes (Hospitalization)
  Sender: FDA-Public Use
  Company Number: 2012S1000880

PATIENT
  Age: 68 Year
  Sex: Male

DRUGS (5)
  1. LIVALO [Suspect]
     Indication: HYPERCHOLESTEROLAEMIA
     Route: 048
     Dates: start: 20120501, end: 20120529
  2. DIOVAN [Concomitant]
  3. PREDNISOLONE [Concomitant]
  4. PERSANTIN-L [Concomitant]
  5. OMEPRAL /00661201/ [Concomitant]

REACTIONS (2)
  - Tubulointerstitial nephritis [None]
  - Blood creatinine increased [None]
